FAERS Safety Report 10053455 (Version 2)
Quarter: 2014Q2

REPORT INFORMATION
  Report Type: Report from Study
  Country: CA (occurrence: CA)
  Receive Date: 20140402
  Receipt Date: 20140411
  Transmission Date: 20141212
  Serious: Yes (Death, Other)
  Sender: FDA-Public Use
  Company Number: PHHY2014CA038646

PATIENT
  Age: 79 Year
  Sex: Female

DRUGS (1)
  1. EXJADE [Suspect]
     Indication: MYELODYSPLASTIC SYNDROME
     Dosage: UNK UKN, UNK
     Route: 048
     Dates: start: 201401, end: 201402

REACTIONS (5)
  - Death [Fatal]
  - Spinal fracture [Unknown]
  - Pelvic fracture [Unknown]
  - Muscular weakness [Unknown]
  - Pain [Unknown]
